FAERS Safety Report 24654440 (Version 3)
Quarter: 2024Q4

REPORT INFORMATION
  Report Type: Spontaneous
  Country: IT (occurrence: IT)
  Receive Date: 20241122
  Receipt Date: 20241219
  Transmission Date: 20250115
  Serious: Yes (Hospitalization, Other)
  Sender: GILEAD
  Company Number: None

PATIENT
  Age: 73 Year
  Sex: Male

DRUGS (9)
  1. YESCARTA [Suspect]
     Active Substance: AXICABTAGENE CILOLEUCEL
     Indication: High-grade B-cell lymphoma
     Dosage: 1 DOSAGE FORM
     Route: 042
     Dates: start: 20240903, end: 20240903
  2. ACYCLOVIR [Concomitant]
     Active Substance: ACYCLOVIR
  3. POSACONAZOLE [Concomitant]
     Active Substance: POSACONAZOLE
  4. BACTRIM [Concomitant]
     Active Substance: SULFAMETHOXAZOLE\TRIMETHOPRIM
  5. LEVETIRACETAM [Concomitant]
     Active Substance: LEVETIRACETAM
  6. ALFUZOSINA [ALFUZOSIN] [Concomitant]
  7. DUTASTERIDE [Concomitant]
     Active Substance: DUTASTERIDE
  8. MESALAMINE [Concomitant]
     Active Substance: MESALAMINE
  9. ENOXAPARIN SODIUM [Concomitant]
     Active Substance: ENOXAPARIN SODIUM

REACTIONS (4)
  - Cytokine release syndrome [Recovered/Resolved]
  - Hypofibrinogenaemia [Recovered/Resolved]
  - Neutropenia [Recovering/Resolving]
  - Drug ineffective [Unknown]

NARRATIVE: CASE EVENT DATE: 20240903
